FAERS Safety Report 24561870 (Version 1)
Quarter: 2024Q4

REPORT INFORMATION
  Report Type: Spontaneous
  Country: CA (occurrence: CA)
  Receive Date: 20241029
  Receipt Date: 20241029
  Transmission Date: 20250114
  Serious: Yes (Hospitalization, Other)
  Sender: TEVA
  Company Number: CA-TEVA-VS-3256754

PATIENT
  Age: 9 Year
  Sex: Female

DRUGS (2)
  1. CISPLATIN [Suspect]
     Active Substance: CISPLATIN
     Indication: Osteosarcoma
     Dosage: SOLUTION INTRAVENOUS , BP SINGLE DOSE VIALS. 10MG/10ML, 50MG/50ML AND 100MG/100ML.PRESERVATIVE-FREE.
     Route: 042
  2. DOXORUBICIN [Suspect]
     Active Substance: DOXORUBICIN
     Indication: Osteosarcoma
     Dosage: SOLUTION INTRAVENOUS
     Route: 042

REACTIONS (2)
  - Pyrexia [Recovering/Resolving]
  - Neutropenia [Recovering/Resolving]
